FAERS Safety Report 6346989-5 (Version None)
Quarter: 2009Q3

REPORT INFORMATION
  Report Type: 
  Country: None (occurrence: None)
  Receive Date: 20090910
  Receipt Date: 20080109
  Transmission Date: 20100115
  Serious: Yes (Hospitalization, Other)
  Sender: FDA-Public Use
  Company Number: US-ASTRAZENECA-2007UW19470

PATIENT
  Age: 17598 Day
  Sex: Female
  Weight: 88.9 kg

DRUGS (26)
  1. SEROQUEL [Suspect]
     Indication: BIPOLAR DISORDER
     Route: 048
     Dates: start: 19970101, end: 20000101
  2. SEROQUEL [Suspect]
     Indication: ANXIETY
     Route: 048
     Dates: start: 19970101, end: 20000101
  3. SEROQUEL [Suspect]
     Route: 048
     Dates: start: 20000101
  4. SEROQUEL [Suspect]
     Route: 048
     Dates: start: 20000101
  5. SEROQUEL [Suspect]
     Route: 048
     Dates: start: 20020802
  6. SEROQUEL [Suspect]
     Route: 048
     Dates: start: 20020802
  7. XANAX [Concomitant]
     Dosage: 0.5 MG - 1 MG
     Route: 048
     Dates: start: 19970829
  8. PROZAC [Concomitant]
     Route: 048
     Dates: start: 19970926
  9. METHADONE [Concomitant]
     Route: 048
     Dates: start: 19971126
  10. RISPERDAL [Concomitant]
     Route: 048
     Dates: start: 19980408
  11. DILAUDID [Concomitant]
     Route: 048
     Dates: start: 19980310
  12. ROXICODONE/ OXYCONTIN [Concomitant]
     Route: 048
     Dates: start: 19980129
  13. LIPITOR [Concomitant]
     Route: 048
     Dates: start: 20050217
  14. ACEON [Concomitant]
     Dosage: 4 MG - 8 MG
     Route: 048
     Dates: start: 20011127
  15. PROVIGIL [Concomitant]
     Dosage: 200 MG - 300 MG
     Route: 048
     Dates: start: 20020422
  16. CRESTOR [Concomitant]
     Route: 048
     Dates: start: 20040330
  17. DETROL [Concomitant]
     Route: 048
     Dates: start: 20030911
  18. VALIUM [Concomitant]
     Dosage: 5 MG - 10 MG
     Route: 048
     Dates: start: 20011120
  19. ALDACTONE [Concomitant]
     Route: 048
     Dates: start: 20020225
  20. DURACT [Concomitant]
     Route: 048
     Dates: start: 19980109
  21. NEURONTIN [Concomitant]
     Route: 048
     Dates: start: 20011021
  22. PROMETHAZINE [Concomitant]
     Route: 048
     Dates: start: 20011022
  23. BACLOFEN [Concomitant]
     Route: 048
     Dates: start: 20010926
  24. ZOFRAN [Concomitant]
     Route: 048
     Dates: start: 20020418
  25. LASIX [Concomitant]
     Route: 048
     Dates: start: 20020720
  26. DOCUSATE [Concomitant]
     Route: 048

REACTIONS (8)
  - ANGINA UNSTABLE [None]
  - CARDIAC FAILURE CONGESTIVE [None]
  - CORONARY ARTERY DISEASE [None]
  - DIABETES MELLITUS [None]
  - HYPERTENSIVE HEART DISEASE [None]
  - MUSCULOSKELETAL CHEST PAIN [None]
  - MYOCARDIAL INFARCTION [None]
  - MYOCARDIAL ISCHAEMIA [None]
